FAERS Safety Report 4467624-7 (Version None)
Quarter: 2004Q4

REPORT INFORMATION
  Report Type: 
  Country: None (occurrence: None)
  Receive Date: 20041004
  Receipt Date: 20041004
  Transmission Date: 20050328
  Serious: Yes (Disabling, Other)
  Sender: FDA-Public Use
  Company Number: None

PATIENT
  Age: 54 Year
  Sex: Female
  Weight: 99.7913 kg

DRUGS (4)
  1. NARDIL [Suspect]
     Indication: MAJOR DEPRESSION
     Dosage: 120 MG A DAY X3 TIMES A DAY - ORALLY
     Route: 048
  2. SYNTHROID [Concomitant]
  3. INSULIN [Concomitant]
  4. LITHIUM [Concomitant]

REACTIONS (3)
  - CONDITION AGGRAVATED [None]
  - DEPRESSION [None]
  - PHARMACEUTICAL PRODUCT COMPLAINT [None]
